FAERS Safety Report 9424570 (Version 3)
Quarter: 2014Q1

REPORT INFORMATION
  Report Type: Report from Study
  Country: CA (occurrence: CA)
  Receive Date: 20130729
  Receipt Date: 20140312
  Transmission Date: 20141002
  Serious: Yes (Hospitalization, Other)
  Sender: FDA-Public Use
  Company Number: CA-ROCHE-1253822

PATIENT
  Age: 64 Year
  Sex: Male
  Weight: 90.7 kg

DRUGS (9)
  1. RITUXAN [Suspect]
     Indication: JUVENILE IDIOPATHIC ARTHRITIS
     Dosage: PREVIOUS DOSE WAS ON: 19/FEB/2013.?FREQUENCY : DAY 1, 15.
     Route: 042
     Dates: start: 20120109
  2. ACETAMINOPHEN [Concomitant]
     Indication: PREMEDICATION
     Route: 048
     Dates: start: 20120109
  3. METHYLPREDNISOLONE [Concomitant]
     Indication: PREMEDICATION
     Route: 042
     Dates: start: 20120109
  4. PREDNISONE [Concomitant]
  5. LOSEC [Concomitant]
  6. MAVIK [Concomitant]
  7. HYDROCHLOROTHIAZIDE [Concomitant]
  8. ZOPICLONE [Concomitant]
  9. OXYCOCET [Concomitant]

REACTIONS (6)
  - Streptococcal sepsis [Unknown]
  - Osteoarthritis [Not Recovered/Not Resolved]
  - Pain [Not Recovered/Not Resolved]
  - Weight decreased [Unknown]
  - Local swelling [Not Recovered/Not Resolved]
  - Off label use [Unknown]
